FAERS Safety Report 19575712 (Version 2)
Quarter: 2024Q2

REPORT INFORMATION
  Report Type: Spontaneous
  Country: US (occurrence: US)
  Receive Date: 20210719
  Receipt Date: 20240528
  Transmission Date: 20240715
  Serious: No
  Sender: FDA-Public Use
  Company Number: US-SA-SAC20210714000790

PATIENT
  Age: 56 Year
  Sex: Female

DRUGS (1)
  1. DUPIXENT [Suspect]
     Active Substance: DUPILUMAB
     Indication: Asthma
     Dosage: 300MG/2ML, QOW
     Route: 058
     Dates: start: 20200904

REACTIONS (4)
  - Influenza [Recovering/Resolving]
  - Dyspnoea [Recovering/Resolving]
  - Sinusitis [Recovering/Resolving]
  - Asthma [Recovering/Resolving]
